FAERS Safety Report 11672487 (Version 1)
Quarter: 2015Q4

REPORT INFORMATION
  Report Type: Spontaneous
  Country: None (occurrence: None)
  Receive Date: 20151026
  Receipt Date: 20151026
  Transmission Date: 20160304
  Serious: No
  Sender: FDA-Public Use
  Company Number: None

PATIENT
  Age: 61 Year
  Sex: Female
  Weight: 41.5 kg

DRUGS (1)
  1. FOSAPREPITANT [Suspect]
     Active Substance: FOSAPREPITANT
     Indication: PROPHYLAXIS OF NAUSEA AND VOMITING
     Route: 042

REACTIONS (6)
  - Dyspnoea [None]
  - Abdominal discomfort [None]
  - Erythema [None]
  - Infusion related reaction [None]
  - Unresponsive to stimuli [None]
  - Muscle contracture [None]

NARRATIVE: CASE EVENT DATE: 20150929
